FAERS Safety Report 22083780 (Version 3)
Quarter: 2023Q2

REPORT INFORMATION
  Report Type: Spontaneous
  Country: IT (occurrence: IT)
  Receive Date: 20230310
  Receipt Date: 20230421
  Transmission Date: 20230722
  Serious: Yes (Life-Threatening, Other)
  Sender: FDA-Public Use
  Company Number: IT-PFIZER INC-2012083913

PATIENT
  Age: 62 Year
  Sex: Male

DRUGS (4)
  1. METHYLPREDNISOLONE SODIUM SUCCINATE [Concomitant]
     Active Substance: METHYLPREDNISOLONE SODIUM SUCCINATE
     Indication: Pneumonia
     Dosage: UNK ()
     Route: 042
  2. FUROSEMIDE [Concomitant]
     Active Substance: FUROSEMIDE
     Indication: Pneumonia
     Dosage: UNK ()
     Route: 042
  3. PIPERACILLIN AND TAZOBACTAM [Suspect]
     Active Substance: PIPERACILLIN SODIUM\TAZOBACTAM SODIUM
     Indication: Pneumonia
     Dosage: 4.5 GRAMS, UNK ; IN TOTAL
     Route: 042
  4. THEOPHYLLINE [Concomitant]
     Active Substance: THEOPHYLLINE
     Indication: Pneumonia
     Dosage: UNK ()
     Route: 042

REACTIONS (6)
  - Kounis syndrome [Recovering/Resolving]
  - Hypoxia [Recovered/Resolved]
  - Hypotension [Recovered/Resolved]
  - Rash erythematous [Recovered/Resolved]
  - Pruritus [Recovered/Resolved]
  - Tachycardia [Recovered/Resolved]
